FAERS Safety Report 16736994 (Version 1)
Quarter: 2019Q3

REPORT INFORMATION
  Report Type: Spontaneous
  Country: US (occurrence: US)
  Receive Date: 20190823
  Receipt Date: 20190823
  Transmission Date: 20191005
  Serious: No
  Sender: FDA-Public Use
  Company Number: US-JNJFOC-20190829288

PATIENT
  Sex: Female
  Weight: 117.59 kg

DRUGS (1)
  1. LEVAQUIN [Suspect]
     Active Substance: LEVOFLOXACIN
     Indication: PSORIASIS
     Route: 065

REACTIONS (3)
  - Disorientation [Unknown]
  - Arthralgia [Unknown]
  - Feeling abnormal [Unknown]
